FAERS Safety Report 7938085-8 (Version None)
Quarter: 2011Q4

REPORT INFORMATION
  Report Type: 
  Country: None (occurrence: None)
  Receive Date: 20111123
  Receipt Date: 20111122
  Transmission Date: 20120403
  Serious: Yes (Hospitalization)
  Sender: FDA-Public Use
  Company Number: US-VERTEX PHARMACEUTICALS INC.-AE-2011-002341

PATIENT
  Age: 64 Year
  Sex: Female

DRUGS (2)
  1. INCIVEK [Suspect]
     Indication: HEPATITIS C
  2. DIURETICS [Concomitant]

REACTIONS (5)
  - RENAL FAILURE [None]
  - MOUTH ULCERATION [None]
  - DRUG RASH WITH EOSINOPHILIA AND SYSTEMIC SYMPTOMS [None]
  - ASCITES [None]
  - HEPATIC CIRRHOSIS [None]
